FAERS Safety Report 21346932 (Version 1)
Quarter: 2022Q3

REPORT INFORMATION
  Report Type: Spontaneous
  Country: US (occurrence: None)
  Receive Date: 20220916
  Receipt Date: 20220916
  Transmission Date: 20221027
  Serious: No
  Sender: FDA-Public Use
  Company Number: None

PATIENT
  Age: 27 Year
  Sex: Female
  Weight: 66.22 kg

DRUGS (3)
  1. HUMIRA [Suspect]
     Active Substance: ADALIMUMAB
     Indication: Spondyloarthropathy
     Dosage: INJECT 40 MG SUBCUTANEOUSLY EVERY 2 WEEKS AS DIRECTED.
     Route: 058
     Dates: start: 202207
  2. HUMIRA [Suspect]
     Active Substance: ADALIMUMAB
     Indication: Polyarthritis
  3. HUMIRA [Suspect]
     Active Substance: ADALIMUMAB
     Indication: Psoriatic arthropathy

REACTIONS (2)
  - Pregnancy [None]
  - Exposure during pregnancy [None]
